FAERS Safety Report 8711863 (Version 2)
Quarter: 2012Q4

REPORT INFORMATION
  Report Type: 
  Country: US (occurrence: US)
  Receive Date: 20120807
  Receipt Date: 20121024
  Transmission Date: 20130627
  Serious: Yes (Other)
  Sender: FDA-Public Use
  Company Number: US-MPIJNJ-2012-05328

PATIENT
  Age: 48 Year
  Sex: Male

DRUGS (7)
  1. VELCADE [Suspect]
     Indication: TRANSPLANT REJECTION
     Dosage: 1.3 mg/m2, Cyclic
     Route: 040
     Dates: start: 20100423, end: 20100429
  2. METHYLPREDNISOLONE [Suspect]
     Indication: TRANSPLANT REJECTION
     Dosage: 100 mg, Cyclic
     Route: 042
  3. METHYLPREDNISOLONE [Suspect]
     Dosage: 50 mg, Cyclic
     Route: 042
  4. MYCOPHENOLATE MOFETIL [Concomitant]
     Indication: IMMUNOSUPPRESSION
     Dosage: 750 mg, bid
     Route: 065
  5. TACROLIMUS [Concomitant]
     Indication: PRODUCT USED FOR UNKNOWN INDICATION
     Dosage: 2 mg, bid
     Route: 065
  6. BACTRIM DS [Concomitant]
     Indication: PRODUCT USED FOR UNKNOWN INDICATION
     Dosage: UNK,
     Route: 065
  7. VALCYTE [Concomitant]
     Indication: PRODUCT USED FOR UNKNOWN INDICATION
     Dosage: 450 mg, UNK
     Route: 065

REACTIONS (1)
  - Cytomegalovirus infection [Unknown]
